FAERS Safety Report 5311771-4 (Version None)
Quarter: 2007Q2

REPORT INFORMATION
  Report Type: 
  Country: None (occurrence: None)
  Receive Date: 20070430
  Receipt Date: 20060126
  Transmission Date: 20071010
  Serious: No
  Sender: FDA-Public Use
  Company Number: 2006UW01435

PATIENT
  Age: 62 Year
  Sex: Female
  Weight: 76.2 kg

DRUGS (5)
  1. NEXIUM [Suspect]
     Indication: OESOPHAGEAL DISCOMFORT
     Route: 048
  2. ZETIA [Concomitant]
  3. DIAVAN [Concomitant]
  4. FISH OIL [Concomitant]
  5. VITAMINS [Concomitant]

REACTIONS (2)
  - BACK PAIN [None]
  - TENDERNESS [None]
